FAERS Safety Report 9236228 (Version 1)
Quarter: 2013Q2

REPORT INFORMATION
  Report Type: Spontaneous
  Country: FR (occurrence: FR)
  Receive Date: 20130417
  Receipt Date: 20130417
  Transmission Date: 20140414
  Serious: Yes (Death)
  Sender: FDA-Public Use
  Company Number: FR-PFIZER INC-2013118316

PATIENT
  Age: 66 Year
  Sex: Female

DRUGS (8)
  1. CORDARONE [Suspect]
     Dosage: UNK
     Route: 048
  2. LASILIX [Suspect]
     Dosage: UNK
     Route: 048
  3. HEPARIN SODIUM [Suspect]
     Dosage: UNK
     Route: 042
     Dates: start: 20130215
  4. PREVISCAN [Suspect]
     Dosage: 20 MG, DAILY
     Route: 048
     Dates: start: 20130218
  5. INEXIUM [Suspect]
     Dosage: UNK
     Route: 048
  6. DAFALGAN [Suspect]
     Dosage: UNK
     Route: 048
  7. PROTAMINE [Concomitant]
     Dosage: UNK
     Dates: start: 20130215, end: 20130215
  8. EPHEDRINE [Concomitant]
     Dosage: 2 BOLUS
     Dates: start: 20130215, end: 20130215

REACTIONS (2)
  - Cardio-respiratory arrest [Fatal]
  - Cerebrovascular accident [Fatal]
